FAERS Safety Report 5831254-2 (Version None)
Quarter: 2008Q3

REPORT INFORMATION
  Report Type: 
  Country: None (occurrence: None)
  Receive Date: 20080801
  Receipt Date: 20080721
  Transmission Date: 20090109
  Serious: Yes (Hospitalization, Other)
  Sender: FDA-Public Use
  Company Number: US-PFIZER INC-2008061122

PATIENT
  Sex: Female

DRUGS (3)
  1. GEODON [Suspect]
     Indication: SCHIZOPHRENIA
  2. WELLBUTRIN [Concomitant]
  3. SEROQUEL [Concomitant]

REACTIONS (2)
  - BRAIN NEOPLASM [None]
  - CONVULSION [None]
